FAERS Safety Report 18574961 (Version 1)
Quarter: 2020Q4

REPORT INFORMATION
  Report Type: Spontaneous
  Country: PL (occurrence: PL)
  Receive Date: 20201203
  Receipt Date: 20201203
  Transmission Date: 20210114
  Serious: Yes (Other)
  Sender: FDA-Public Use
  Company Number: PL-TEVA-2020-PL-1854358

PATIENT
  Age: 19 Year
  Sex: Female

DRUGS (3)
  1. TRAMAL RETARD 100 MG [Suspect]
     Active Substance: TRAMADOL HYDROCHLORIDE
     Indication: ACCIDENTAL POISONING
     Dosage: DOSE: 4 TABLETS, UNIT DOSE : 4 DOSAGE FORMS
     Route: 048
     Dates: start: 20200212, end: 20200212
  2. OXYCODONE [Suspect]
     Active Substance: OXYCODONE
     Indication: ACCIDENTAL POISONING
     Dosage: UNIT DOSE : 40 MG
     Route: 048
     Dates: start: 20200212, end: 20200212
  3. CLONAZEPAM 2 MG [Suspect]
     Active Substance: CLONAZEPAM
     Indication: ACCIDENTAL POISONING
     Dosage: DOSE: 3 TABLETS, UNIT DOSE : 3 DOSAGE FORMS
     Route: 048
     Dates: start: 20200212, end: 20200212

REACTIONS (2)
  - Coma [Recovered/Resolved]
  - Miosis [Recovered/Resolved]

NARRATIVE: CASE EVENT DATE: 20200212
